FAERS Safety Report 4866067-1 (Version None)
Quarter: 2005Q4

REPORT INFORMATION
  Report Type: 
  Country: None (occurrence: None)
  Receive Date: 20051221
  Receipt Date: 20051213
  Transmission Date: 20060501
  Serious: Yes (Hospitalization, Other)
  Sender: FDA-Public Use
  Company Number: HQWYE030415DEC05

PATIENT
  Age: 62 Year
  Sex: Female

DRUGS (5)
  1. TAZONAM (PIPERACILLIN/TAZOBACTAM, INJECTION) [Suspect]
     Indication: LUNG INFECTION PSEUDOMONAL
     Dosage: 9 GRAMS FOUR TIMES DAILY
     Route: 042
     Dates: start: 20031107, end: 20031111
  2. TAZONAM (PIPERACILLIN/TAZOBACTAM, INJECTION) [Suspect]
     Indication: PNEUMONIA
     Dosage: 9 GRAMS FOUR TIMES DAILY
     Route: 042
     Dates: start: 20031107, end: 20031111
  3. BIKLIN (AMIKACIN SULFATE) [Concomitant]
  4. NEXIUM [Concomitant]
  5. DIPRIVAN [Concomitant]

REACTIONS (2)
  - PATHOGEN RESISTANCE [None]
  - SUPERINFECTION [None]
